FAERS Safety Report 8892926 (Version 1)
Quarter: 2012Q4

REPORT INFORMATION
  Report Type: 
  Country: US (occurrence: US)
  Receive Date: 20121107
  Receipt Date: 20121107
  Transmission Date: 20130627
  Serious: No
  Sender: FDA-Public Use
  Company Number: US-AMGEN-USASP2011059468

PATIENT
  Age: 60 Year
  Sex: Female
  Weight: 111.11 kg

DRUGS (4)
  1. ENBREL [Suspect]
     Indication: PRODUCT USED FOR UNKNOWN INDICATION
     Dosage: 50 mg, qwk
     Route: 058
  2. LISINOPRIL + HIDROCLOROTIAZIDA [Concomitant]
  3. SIMVASTATIN [Concomitant]
     Dosage: 5 mg, UNK
  4. HYDROXYCHLOROQUINE [Concomitant]
     Dosage: 200 mg, UNK

REACTIONS (1)
  - Rash [Unknown]
